FAERS Safety Report 4452020-9 (Version None)
Quarter: 2004Q3

REPORT INFORMATION
  Report Type: 
  Country: None (occurrence: None)
  Receive Date: 20040915
  Receipt Date: 20040915
  Transmission Date: 20050211
  Serious: Yes (Life-Threatening, Hospitalization)
  Sender: FDA-Public Use
  Company Number: None

PATIENT
  Age: 79 Year
  Sex: Male
  Weight: 62 kg

DRUGS (10)
  1. COGENTIN [Suspect]
     Dosage: 0.5 MG BID
  2. ZYPREXA [Suspect]
     Indication: DEPRESSION
     Dosage: 7.5 MG QHS
  3. NITRO-BID [Concomitant]
  4. LITHIUM [Concomitant]
  5. AMANTADINE HCL [Concomitant]
  6. PROSCAR [Concomitant]
  7. FLOMAX [Concomitant]
  8. PREVACID [Concomitant]
  9. CARDIZEM CD [Concomitant]
  10. CARDURA [Concomitant]

REACTIONS (5)
  - COMMUNICATION DISORDER [None]
  - HYPERGLYCAEMIA [None]
  - LETHARGY [None]
  - MENTAL STATUS CHANGES [None]
  - RENAL FAILURE CHRONIC [None]
